FAERS Safety Report 21374126 (Version 1)
Quarter: 2022Q3

REPORT INFORMATION
  Report Type: Report from Study
  Country: US (occurrence: US)
  Receive Date: 20220926
  Receipt Date: 20220926
  Transmission Date: 20221026
  Serious: Yes (Hospitalization, Other)
  Sender: FDA-Public Use
  Company Number: US-GILEAD-2022-0598823

PATIENT
  Age: 61 Year
  Sex: Male

DRUGS (1)
  1. AZTREONAM LYSINE [Suspect]
     Active Substance: AZTREONAM LYSINE
     Indication: Bronchiectasis
     Dosage: 75 MG, TID
     Route: 055
     Dates: start: 202112

REACTIONS (4)
  - Pneumonia [Unknown]
  - Pyrexia [Unknown]
  - Pulmonary oedema [Unknown]
  - Off label use [Not Recovered/Not Resolved]
